FAERS Safety Report 4733845-9 (Version None)
Quarter: 2005Q3

REPORT INFORMATION
  Report Type: 
  Country: None (occurrence: None)
  Receive Date: 20050803
  Receipt Date: 20050210
  Transmission Date: 20060218
  Serious: Yes (Death, Hospitalization)
  Sender: FDA-Public Use
  Company Number: US-MERCK-0502USA01607

PATIENT
  Age: 82 Year
  Sex: Male
  Weight: 91 kg

DRUGS (3)
  1. VIOXX [Suspect]
     Indication: OSTEOARTHRITIS
     Route: 048
     Dates: start: 20020101, end: 20030207
  2. LIPITOR [Concomitant]
     Route: 065
     Dates: start: 20000101, end: 20030210
  3. ZOCOR [Concomitant]
     Route: 065
     Dates: start: 20000101, end: 20030210

REACTIONS (3)
  - CEREBROVASCULAR ACCIDENT [None]
  - COMA [None]
  - GASTRITIS [None]
